FAERS Safety Report 4718136-4 (Version None)
Quarter: 2005Q3

REPORT INFORMATION
  Report Type: 
  Country: None (occurrence: None)
  Receive Date: 20050720
  Receipt Date: 20050708
  Transmission Date: 20060218
  Serious: Yes (Other)
  Sender: FDA-Public Use
  Company Number: PHBS2005BE10044

PATIENT
  Age: 71 Year
  Sex: Male

DRUGS (7)
  1. AREDIA [Suspect]
     Indication: MULTIPLE MYELOMA
     Dates: start: 20010501, end: 20020901
  2. ZOMERA [Suspect]
     Indication: MULTIPLE MYELOMA
     Dates: start: 20021001, end: 20050601
  3. VAD 4X [Concomitant]
     Dates: start: 19980601
  4. INTERFERON [Concomitant]
     Dates: start: 19990101, end: 20000601
  5. ENDOXAN [Concomitant]
     Indication: STEM CELL TRANSPLANT
     Dosage: 4 GRAM/M2
     Dates: start: 19980918
  6. MELPHALAN [Concomitant]
     Indication: STEM CELL TRANSPLANT
     Dates: start: 19981101
  7. THALIDOMIDE [Concomitant]
     Dates: start: 20000601, end: 20020101

REACTIONS (13)
  - ASEPTIC NECROSIS BONE [None]
  - BACTERIAL INFECTION [None]
  - BONE LESION [None]
  - GINGIVAL DISORDER [None]
  - HYPERBARIC OXYGEN THERAPY [None]
  - IMPAIRED HEALING [None]
  - LOCAL SWELLING [None]
  - ORAL MUCOSAL DISORDER [None]
  - OSTEOMYELITIS [None]
  - PURULENCE [None]
  - SEQUESTRECTOMY [None]
  - TOOTH EXTRACTION [None]
  - WOUND DEBRIDEMENT [None]
